FAERS Safety Report 4922343-5 (Version None)
Quarter: 2006Q1

REPORT INFORMATION
  Report Type: 
  Country: None (occurrence: None)
  Receive Date: 20060224
  Receipt Date: 20060213
  Transmission Date: 20060701
  Serious: Yes (Hospitalization, Disabling)
  Sender: FDA-Public Use
  Company Number: US-MERCK-0602USA04341

PATIENT
  Age: 47 Year
  Sex: Female
  Weight: 109 kg

DRUGS (6)
  1. VIOXX [Suspect]
     Indication: HEADACHE
     Route: 048
     Dates: start: 20040101, end: 20040401
  2. GLUCOPHAGE [Concomitant]
     Route: 065
  3. GLUCOTROL [Concomitant]
     Route: 065
  4. ASPIRIN [Concomitant]
     Route: 065
     Dates: start: 20030701, end: 20040501
  5. NORVASC [Concomitant]
     Indication: CARDIAC DISORDER
     Route: 065
  6. PRAVACHOL [Concomitant]
     Route: 065
     Dates: start: 20030701, end: 20050101

REACTIONS (4)
  - COSTOCHONDRITIS [None]
  - MYOCARDIAL INFARCTION [None]
  - SLEEP APNOEA SYNDROME [None]
  - THROMBOSIS [None]
